FAERS Safety Report 6426637-6 (Version None)
Quarter: 2009Q4

REPORT INFORMATION
  Report Type: 
  Country: None (occurrence: None)
  Receive Date: 20091104
  Receipt Date: 20091026
  Transmission Date: 20100525
  Serious: Yes (Life-Threatening, Hospitalization)
  Sender: FDA-Public Use
  Company Number: GXKR2009GB11731

PATIENT
  Age: 39 Year
  Sex: Male

DRUGS (11)
  1. LISINOPRIL [Suspect]
     Indication: HYPERTENSION
     Dosage: 5 MG, QD
     Route: 048
     Dates: start: 20090217
  2. METFORMIN (NGX) [Suspect]
     Indication: TYPE 2 DIABETES MELLITUS
     Dosage: 500 MG, TID
     Route: 048
     Dates: start: 20090217
  3. OMEPRAZOLE (NGX) [Suspect]
     Dosage: UNK
     Route: 065
     Dates: start: 20090217
  4. SIMVASTATIN (NGX) [Suspect]
     Indication: BLOOD CHOLESTEROL INCREASED
     Dosage: UNK
     Route: 048
     Dates: start: 20090217
  5. CLOMIPRAMINE [Suspect]
     Indication: ANXIETY
     Dosage: UNK
     Route: 048
     Dates: start: 20090217
  6. CLOMIPRAMINE [Suspect]
     Indication: DEPRESSION
     Route: 048
  7. CLOZARIL [Suspect]
     Indication: SCHIZOPHRENIA
     Dosage: 600 MG/DAY
     Route: 048
     Dates: start: 20031202
  8. CLOZARIL [Suspect]
     Dosage: OVERDOSE
     Route: 048
     Dates: start: 20090217
  9. SENNA [Suspect]
     Indication: CONSTIPATION
     Route: 048
  10. HYOSCINE [Suspect]
     Dosage: UNK
     Route: 065
     Dates: start: 20090217
  11. THIAMIDE [Concomitant]
     Route: 065

REACTIONS (6)
  - AGITATION [None]
  - COMA SCALE ABNORMAL [None]
  - MECHANICAL VENTILATION [None]
  - NEUTROPHIL COUNT INCREASED [None]
  - OVERDOSE [None]
  - WHITE BLOOD CELL COUNT INCREASED [None]
